FAERS Safety Report 19928033 (Version 4)
Quarter: 2021Q4

REPORT INFORMATION
  Report Type: Report from Study
  Country: CO (occurrence: CO)
  Receive Date: 20211007
  Receipt Date: 20211215
  Transmission Date: 20220303
  Serious: Yes (Hospitalization)
  Sender: FDA-Public Use
  Company Number: NVSC2020CO328851

PATIENT
  Sex: Male

DRUGS (1)
  1. ELTROMBOPAG OLAMINE [Suspect]
     Active Substance: ELTROMBOPAG OLAMINE
     Indication: Immune thrombocytopenia
     Dosage: UNK
     Route: 048

REACTIONS (7)
  - Rectal haemorrhage [Unknown]
  - Cerebral thrombosis [Unknown]
  - Disease recurrence [Unknown]
  - Platelet count decreased [Unknown]
  - Malaise [Unknown]
  - Product supply issue [Unknown]
  - Incorrect dose administered [Unknown]
